FAERS Safety Report 4357715-3 (Version None)
Quarter: 2004Q2

REPORT INFORMATION
  Report Type: 
  Country: None (occurrence: None)
  Receive Date: 20040513
  Receipt Date: 20040423
  Transmission Date: 20050107
  Serious: Yes (Death, Life-Threatening)
  Sender: FDA-Public Use
  Company Number: FR-GLAXOSMITHKLINE-B0330888A

PATIENT
  Age: 38 Year
  Sex: Male
  Weight: 70 kg

DRUGS (4)
  1. AUGMENTIN [Suspect]
     Indication: ANTIBACTERIAL PROPHYLAXIS
     Route: 042
     Dates: start: 19970823, end: 19970823
  2. ACETAMINOPHEN W/ PROPOXYPHENE HCL [Concomitant]
     Route: 042
     Dates: start: 19970823
  3. XYLOCAINE [Concomitant]
     Route: 065
     Dates: start: 19970823
  4. BETADINE [Concomitant]
     Route: 061
     Dates: start: 19970823

REACTIONS (5)
  - ANAPHYLACTIC SHOCK [None]
  - BRONCHOSPASM [None]
  - CARDIAC ARREST [None]
  - EPILEPSY [None]
  - GENERAL PHYSICAL HEALTH DETERIORATION [None]
